FAERS Safety Report 13302374 (Version 3)
Quarter: 2020Q2

REPORT INFORMATION
  Report Type: Report from Study
  Country: CA (occurrence: CA)
  Receive Date: 20170307
  Receipt Date: 20200528
  Transmission Date: 20200713
  Serious: Yes (Other)
  Sender: FDA-Public Use
  Company Number: CA-AMGEN-CANSL2017031963

PATIENT
  Age: 90 Year
  Sex: Female

DRUGS (8)
  1. FOLIC [Concomitant]
     Active Substance: FOLIC ACID
  2. ANASTROZOL [Concomitant]
     Active Substance: ANASTROZOLE
  3. PANTOPRAZOLE [Concomitant]
     Active Substance: PANTOPRAZOLE
  4. MTX [Concomitant]
     Active Substance: METHOTREXATE SODIUM
  5. PREDNISONE. [Concomitant]
     Active Substance: PREDNISONE
  6. D TABS [Concomitant]
     Active Substance: CHOLECALCIFEROL
  7. PROLIA [Suspect]
     Active Substance: DENOSUMAB
     Indication: PRODUCT USED FOR UNKNOWN INDICATION
     Dosage: 60 MILLIGRAM PER MILLILITRE, Q6MO
     Route: 065
     Dates: start: 20161006
  8. PRAVASTATIN. [Concomitant]
     Active Substance: PRAVASTATIN

REACTIONS (8)
  - Pain in extremity [Unknown]
  - Arthritis [Recovering/Resolving]
  - Arthralgia [Recovering/Resolving]
  - Spinal fracture [Unknown]
  - Contusion [Unknown]
  - Osteoporosis [Unknown]
  - Drug ineffective [Unknown]
  - Fall [Unknown]

NARRATIVE: CASE EVENT DATE: 201701
